FAERS Safety Report 24928152 (Version 1)
Quarter: 2025Q1

REPORT INFORMATION
  Report Type: Spontaneous
  Country: US (occurrence: None)
  Receive Date: 20250204
  Receipt Date: 20250204
  Transmission Date: 20250408
  Serious: Yes (Life-Threatening, Hospitalization, Disabling, Other)
  Sender: FDA-CTU
  Company Number: None

PATIENT
  Age: 74 Year
  Sex: Male
  Weight: 110.25 kg

DRUGS (14)
  1. MEGESTROL ACETATE [Suspect]
     Active Substance: MEGESTROL ACETATE
     Indication: Hot flush
     Dosage: 90 TABLETS TWICE A DAY ORAL
     Route: 048
     Dates: start: 20241031, end: 20250130
  2. ORGOVYX [Suspect]
     Active Substance: RELUGOLIX
  3. LISINOPRIL [Concomitant]
     Active Substance: LISINOPRIL
  4. HYDROCHLOROTHIAZIDE [Concomitant]
     Active Substance: HYDROCHLOROTHIAZIDE
  5. ALFUZOSIN [Concomitant]
     Active Substance: ALFUZOSIN
  6. METOPROLOL TARTRATE [Concomitant]
     Active Substance: METOPROLOL TARTRATE
  7. GLIPIZIDE [Concomitant]
     Active Substance: GLIPIZIDE
  8. ELIQUIS [Concomitant]
     Active Substance: APIXABAN
  9. METFORMIN [Concomitant]
     Active Substance: METFORMIN HYDROCHLORIDE
  10. B12 [Concomitant]
  11. VITAMIN D3 [Concomitant]
     Active Substance: CHOLECALCIFEROL
  12. FOLIC ACID [Concomitant]
     Active Substance: FOLIC ACID
  13. ASPIRIN [Concomitant]
     Active Substance: ASPIRIN
  14. Delat 8 gummy [Concomitant]

REACTIONS (4)
  - Deep vein thrombosis [None]
  - Pulmonary embolism [None]
  - Therapy cessation [None]
  - Palpitations [None]

NARRATIVE: CASE EVENT DATE: 20250124
